FAERS Safety Report 19259994 (Version 1)
Quarter: 2021Q2

REPORT INFORMATION
  Report Type: Spontaneous
  Country: US (occurrence: US)
  Receive Date: 20210514
  Receipt Date: 20210514
  Transmission Date: 20210717
  Serious: Yes (Other)
  Sender: FDA-Public Use
  Company Number: US-TEVA-2021-US-1911072

PATIENT
  Sex: Female

DRUGS (2)
  1. OCREVUS [Concomitant]
     Active Substance: OCRELIZUMAB
  2. COPAXONE [Suspect]
     Active Substance: GLATIRAMER ACETATE
     Indication: PRODUCT USED FOR UNKNOWN INDICATION
     Route: 065

REACTIONS (2)
  - Multiple sclerosis relapse [Unknown]
  - Maternal exposure during pregnancy [Unknown]
